FAERS Safety Report 8228012-0 (Version None)
Quarter: 2012Q1

REPORT INFORMATION
  Report Type: 
  Country: None (occurrence: None)
  Receive Date: 20120322
  Receipt Date: 20120124
  Transmission Date: 20120608
  Serious: No
  Sender: FDA-Public Use
  Company Number: US-BRISTOL-MYERS SQUIBB COMPANY-16365801

PATIENT
  Age: 45 Year
  Sex: Female
  Weight: 60 kg

DRUGS (1)
  1. ERBITUX [Suspect]
     Indication: COLON CANCER
     Dosage: NO OF TREATMENT:PROBABLY EIGHT
     Dates: start: 20111201

REACTIONS (4)
  - RASH [None]
  - SKIN FISSURES [None]
  - DRY SKIN [None]
  - SEXUAL DYSFUNCTION [None]
